FAERS Safety Report 18956788 (Version 4)
Quarter: 2021Q2

REPORT INFORMATION
  Report Type: Spontaneous
  Country: BE (occurrence: BE)
  Receive Date: 20210301
  Receipt Date: 20210413
  Transmission Date: 20210717
  Serious: Yes (Other)
  Sender: FDA-Public Use
  Company Number: BE-SUN PHARMACEUTICAL INDUSTRIES LTD-2021R1-282880

PATIENT
  Age: 69 Year
  Sex: Male

DRUGS (1)
  1. SERTRALINE [Suspect]
     Active Substance: SERTRALINE HYDROCHLORIDE
     Indication: DEPRESSION
     Dosage: 100 MILLIGRAM, DAILY
     Route: 065
     Dates: start: 201606

REACTIONS (3)
  - Condition aggravated [Unknown]
  - Eosinophilic pneumonia [Recovered/Resolved]
  - Pulmonary toxicity [Recovered/Resolved]
